FAERS Safety Report 20632506 (Version 1)
Quarter: 2022Q1

REPORT INFORMATION
  Report Type: Report from Study
  Country: US (occurrence: US)
  Receive Date: 20220324
  Receipt Date: 20220324
  Transmission Date: 20220423
  Serious: No
  Sender: FDA-Public Use
  Company Number: US-NOVARTISTESTPH-NVSC2022US064415

PATIENT
  Sex: Female
  Weight: 61.224 kg

DRUGS (3)
  1. COSENTYX [Suspect]
     Active Substance: SECUKINUMAB
     Indication: Furuncle
     Dosage: 300 MG, QMO
     Route: 058
     Dates: start: 20210112, end: 20210429
  2. COSENTYX [Suspect]
     Active Substance: SECUKINUMAB
     Indication: Oropharyngeal pain
  3. COSENTYX [Suspect]
     Active Substance: SECUKINUMAB
     Indication: Stomatitis

REACTIONS (3)
  - Furuncle [Recovered/Resolved]
  - Oropharyngeal pain [Recovered/Resolved]
  - Stomatitis [Recovered/Resolved]
